FAERS Safety Report 9067205 (Version 1)
Quarter: 2013Q1

REPORT INFORMATION
  Report Type: Spontaneous
  Country: AT (occurrence: AT)
  Receive Date: 20130214
  Receipt Date: 20130214
  Transmission Date: 20140127
  Serious: Yes (Hospitalization)
  Sender: FDA-Public Use
  Company Number: AT-PFIZER INC-2013054204

PATIENT
  Age: 46 Year
  Sex: Female

DRUGS (11)
  1. LYRICA [Suspect]
     Indication: BIPOLAR DISORDER
     Dosage: 100 MG, 1X/DAY
     Dates: start: 20121002, end: 20121002
  2. LYRICA [Suspect]
     Indication: BORDERLINE PERSONALITY DISORDER
     Dosage: 225 MG, 1X/DAY
     Dates: start: 20121003, end: 20121024
  3. LYRICA [Suspect]
     Dosage: 450 MG, 1X/DAY
     Dates: start: 20121025
  4. CARBAMAZEPINE [Suspect]
     Dosage: 300 MG, 1X/DAY
     Dates: start: 20121030, end: 20121030
  5. CARBAMAZEPINE [Suspect]
     Dosage: 600 MG, 1X/DAY
     Dates: start: 2012, end: 20121102
  6. CARBAMAZEPINE [Suspect]
     Dosage: 300 MG, 1X/DAY
     Dates: start: 20121103, end: 20121104
  7. NEXIUM [Suspect]
     Dosage: 40 MG, 1X/DAY
     Dates: start: 20120828
  8. ZOLPIDEM TARTRATE [Concomitant]
     Dosage: 20 MG, 1X/DAY
     Dates: start: 20121015, end: 20121024
  9. ZOLPIDEM TARTRATE [Concomitant]
     Dosage: 10 MG, 1X/DAY
     Dates: start: 20121025, end: 20121103
  10. ZOLPIDEM TARTRATE [Concomitant]
     Dosage: 5 MG, 1X/DAY
     Dates: start: 20121104
  11. PROTHIPENDYL HYDROCHLORIDE [Concomitant]
     Dosage: 80 MG, 1X/DAY
     Dates: start: 20121025

REACTIONS (1)
  - Hyponatraemia [Recovered/Resolved]
